FAERS Safety Report 16099842 (Version 1)
Quarter: 2019Q1

REPORT INFORMATION
  Report Type: Spontaneous
  Country: JP (occurrence: JP)
  Receive Date: 20190321
  Receipt Date: 20190321
  Transmission Date: 20190418
  Serious: Yes (Other)
  Sender: FDA-Public Use
  Company Number: JP-BAYER-2019-051959

PATIENT
  Sex: Female
  Weight: 2.18 kg

DRUGS (2)
  1. BAYASPIRIN 100 MG [Suspect]
     Active Substance: ASPIRIN
     Indication: THROMBOSIS PROPHYLAXIS
     Dosage: LOW-DOSE
     Route: 064
  2. HEPARIN [Concomitant]
     Active Substance: HEPARIN SODIUM
     Indication: THROMBOSIS PROPHYLAXIS
     Dosage: DAILY DOSE 10000 IU
     Route: 064

REACTIONS (4)
  - Foetal exposure during pregnancy [None]
  - Foetal growth restriction [None]
  - Low birth weight baby [None]
  - Foetal heart rate deceleration abnormality [None]
